FAERS Safety Report 17840091 (Version 1)
Quarter: 2020Q2

REPORT INFORMATION
  Report Type: Spontaneous
  Country: US (occurrence: US)
  Receive Date: 20200529
  Receipt Date: 20200529
  Transmission Date: 20200714
  Serious: No
  Sender: FDA-Public Use
  Company Number: US-ACCORD-173772

PATIENT
  Sex: Male

DRUGS (1)
  1. CLONAZEPAM ACCORD [Suspect]
     Active Substance: CLONAZEPAM
     Indication: ANXIETY
     Dosage: ONCE DAILY
     Route: 048
     Dates: start: 2018

REACTIONS (4)
  - Muscle strain [Not Recovered/Not Resolved]
  - Sleep terror [Not Recovered/Not Resolved]
  - Product substitution issue [Unknown]
  - Fall [Unknown]

NARRATIVE: CASE EVENT DATE: 2018
